FAERS Safety Report 17244562 (Version 1)
Quarter: 2020Q1

REPORT INFORMATION
  Report Type: Spontaneous
  Country: TR (occurrence: TR)
  Receive Date: 20200107
  Receipt Date: 20200107
  Transmission Date: 20200409
  Serious: Yes (Hospitalization)
  Sender: FDA-Public Use
  Company Number: TR-NOVOPROD-705086

PATIENT
  Age: 63 Year
  Sex: Female
  Weight: 77 kg

DRUGS (2)
  1. SAXENDA [Suspect]
     Active Substance: LIRAGLUTIDE
     Indication: WEIGHT CONTROL
     Dosage: 1X1
     Route: 058
     Dates: start: 20191214, end: 20191215
  2. CO-DIOVAN [Concomitant]
     Active Substance: HYDROCHLOROTHIAZIDE\VALSARTAN
     Indication: HYPERTENSION
     Dosage: HALF TABLET DAILY
     Route: 048
     Dates: start: 2009

REACTIONS (2)
  - Cholelithiasis [Unknown]
  - Tinnitus [Unknown]
